FAERS Safety Report 4898907-4 (Version None)
Quarter: 2006Q1

REPORT INFORMATION
  Report Type: 
  Country: None (occurrence: None)
  Receive Date: 20060202
  Receipt Date: 20060123
  Transmission Date: 20060701
  Serious: Yes (Hospitalization)
  Sender: FDA-Public Use
  Company Number: US-KINGPHARMUSA00001-K200600080

PATIENT
  Age: 21 Year
  Sex: Male

DRUGS (5)
  1. SONATA [Suspect]
     Dosage: 13 CAPS OVERDOSE AMOUNT OF 65MG
     Route: 048
     Dates: start: 20060119, end: 20060119
  2. ALCOHOL [Suspect]
     Dosage: 3 L, SINGLE
     Route: 048
     Dates: start: 20060119, end: 20060119
  3. ALPRAZOLAM [Suspect]
     Dosage: 9 TABLETS OVERDOSE AMOUNT 4.5MG
     Route: 048
     Dates: start: 20060119, end: 20060119
  4. DOMINAL ^ASTA^ [Suspect]
     Dosage: 50 TABLETS OVERDOSE AMT. 2000MG
     Route: 048
     Dates: start: 20060119, end: 20060119
  5. LORAZEPAM [Suspect]
     Dosage: 60 TABLETS OVERDOSE AMOUNT 30 MG
     Route: 048
     Dates: start: 20060119, end: 20060119

REACTIONS (3)
  - FATIGUE [None]
  - INTENTIONAL OVERDOSE [None]
  - SUICIDE ATTEMPT [None]
